FAERS Safety Report 10472473 (Version 1)
Quarter: 2014Q3

REPORT INFORMATION
  Report Type: Spontaneous
  Country: US (occurrence: None)
  Receive Date: 20140923
  Receipt Date: 20140923
  Transmission Date: 20150326
  Serious: Yes (Disabling)
  Sender: FDA-Public Use
  Company Number: None

PATIENT
  Age: 64 Year
  Sex: Female
  Weight: 53.07 kg

DRUGS (2)
  1. GABAPENTIN. [Suspect]
     Active Substance: GABAPENTIN
     Indication: AKATHISIA
     Dosage: THREE TABS TWICE DAILY TAKEN BY MOUTH
     Route: 048
     Dates: start: 20090915, end: 20140921
  2. GABAPENTIN. [Suspect]
     Active Substance: GABAPENTIN
     Indication: RESTLESS LEGS SYNDROME
     Dosage: THREE TABS TWICE DAILY TAKEN BY MOUTH
     Route: 048
     Dates: start: 20090915, end: 20140921

REACTIONS (24)
  - Mobility decreased [None]
  - Unevaluable event [None]
  - Salivary gland disorder [None]
  - Allodynia [None]
  - Swelling [None]
  - Paraesthesia [None]
  - Bone pain [None]
  - Condition aggravated [None]
  - Hyperacusis [None]
  - Myalgia [None]
  - Anxiety [None]
  - Depression [None]
  - Blood sodium abnormal [None]
  - Hypoaesthesia oral [None]
  - Inappropriate antidiuretic hormone secretion [None]
  - Constipation [None]
  - Pain [None]
  - Salivary gland enlargement [None]
  - Neuralgia [None]
  - Ataxia [None]
  - Prescribed overdose [None]
  - Hypoaesthesia [None]
  - Irritability [None]
  - Panic reaction [None]

NARRATIVE: CASE EVENT DATE: 20140813
